FAERS Safety Report 17648315 (Version 1)
Quarter: 2020Q2

REPORT INFORMATION
  Report Type: Spontaneous
  Country: US (occurrence: US)
  Receive Date: 20200409
  Receipt Date: 20200409
  Transmission Date: 20200713
  Serious: No
  Sender: FDA-Public Use
  Company Number: US-AJANTA PHARMA USA INC.-2082550

PATIENT
  Age: 92 Year
  Sex: Female

DRUGS (1)
  1. RANITIDINE (ANDA 209859) [Suspect]
     Active Substance: RANITIDINE

REACTIONS (1)
  - Abdominal discomfort [Unknown]
